FAERS Safety Report 6400964-0 (Version None)
Quarter: 2009Q4

REPORT INFORMATION
  Report Type: 
  Country: None (occurrence: None)
  Receive Date: 20091015
  Receipt Date: 20091005
  Transmission Date: 20100525
  Serious: Yes (Hospitalization)
  Sender: FDA-Public Use
  Company Number: US-BIOGENIDEC-2009BI023814

PATIENT
  Age: 52 Year
  Sex: Female

DRUGS (2)
  1. AVONEX [Suspect]
     Indication: MULTIPLE SCLEROSIS
     Route: 030
     Dates: start: 20060727, end: 20090724
  2. AVONEX [Suspect]
     Route: 030

REACTIONS (10)
  - HAEMATOMA [None]
  - INFECTION [None]
  - INFECTIVE THROMBOSIS [None]
  - INJECTION SITE PAIN [None]
  - INJECTION SITE THROMBOSIS [None]
  - MYOSITIS [None]
  - OEDEMA PERIPHERAL [None]
  - PAIN IN EXTREMITY [None]
  - TENDONITIS [None]
  - WRONG TECHNIQUE IN DRUG USAGE PROCESS [None]
